FAERS Safety Report 4514431-2 (Version None)
Quarter: 2004Q4

REPORT INFORMATION
  Report Type: 
  Country: None (occurrence: None)
  Receive Date: 20041126
  Receipt Date: 20041109
  Transmission Date: 20050328
  Serious: Yes (Life-Threatening, Hospitalization)
  Sender: FDA-Public Use
  Company Number: PIR 0411015D

PATIENT
  Sex: Male
  Weight: 5 kg

DRUGS (9)
  1. TROPHAMINE [Suspect]
     Indication: GASTROSCHISIS
     Dosage: 9.5 GRAMS DAILY IN TPN
     Route: 051
     Dates: start: 20040825, end: 20040915
  2. TROPHAMINE [Suspect]
     Indication: INTESTINAL PERFORATION
     Dosage: 9.5 GRAMS DAILY IN TPN
     Route: 051
     Dates: start: 20040825, end: 20040915
  3. M.V.I. [Concomitant]
  4. ZANTAC [Concomitant]
  5. LEVOCAMITINE [Concomitant]
  6. HEPARIN [Concomitant]
  7. INTRALIPID 10% [Concomitant]
  8. DEXTROSE [Concomitant]
  9. CYSTEINE [Concomitant]

REACTIONS (5)
  - CATHETER SEPSIS [None]
  - CHOLESTASIS [None]
  - CONDITION AGGRAVATED [None]
  - LIVER FUNCTION TEST ABNORMAL [None]
  - PYREXIA [None]
